FAERS Safety Report 6400109-7 (Version None)
Quarter: 2009Q4

REPORT INFORMATION
  Report Type: 
  Country: None (occurrence: None)
  Receive Date: 20091014
  Receipt Date: 20091006
  Transmission Date: 20100525
  Serious: Yes (Disabling)
  Sender: FDA-Public Use
  Company Number: BR-BAYER-200921492LA

PATIENT
  Age: 35 Year
  Sex: Female

DRUGS (3)
  1. BETAFERON [Suspect]
     Indication: MULTIPLE SCLEROSIS
     Dosage: BETAJECT
     Route: 058
     Dates: start: 20090828
  2. PARACETAMOL [Concomitant]
     Indication: PAIN
     Route: 042
     Dates: start: 20090829, end: 20090829
  3. NEOSALDINA [Concomitant]
     Indication: HEADACHE
     Dosage: 3 DAYS BEFORE MENSTRUAL PERIOD
     Route: 048

REACTIONS (8)
  - ASTHENIA [None]
  - DIZZINESS [None]
  - DYSPNOEA [None]
  - GAIT DISTURBANCE [None]
  - INJECTION SITE PAIN [None]
  - MOBILITY DECREASED [None]
  - MULTIPLE SCLEROSIS [None]
  - MUSCULAR WEAKNESS [None]
